FAERS Safety Report 6591317-3 (Version None)
Quarter: 2010Q1

REPORT INFORMATION
  Report Type: 
  Country: None (occurrence: None)
  Receive Date: 20100219
  Receipt Date: 20100209
  Transmission Date: 20100710
  Serious: Yes (Other)
  Sender: FDA-Public Use
  Company Number: TR-PFIZER INC-2010018301

PATIENT
  Age: 41 Year
  Sex: Female
  Weight: 48.98 kg

DRUGS (1)
  1. NEURONTIN [Suspect]
     Indication: NEURALGIA
     Dosage: 300 MG, 2X/DAY
     Route: 048
     Dates: start: 20100106, end: 20100127

REACTIONS (2)
  - AGEUSIA [None]
  - ANOSMIA [None]
